FAERS Safety Report 7338078-8 (Version None)
Quarter: 2011Q1

REPORT INFORMATION
  Report Type: 
  Country: None (occurrence: None)
  Receive Date: 20110308
  Receipt Date: 20110223
  Transmission Date: 20110831
  Serious: Yes (Other)
  Sender: FDA-Public Use
  Company Number: PHHY2011US15886

PATIENT
  Sex: Female

DRUGS (5)
  1. GLIMEPIRIDE [Concomitant]
  2. SIMVASTATIN [Concomitant]
  3. JANUMET [Concomitant]
  4. ENABLEX [Concomitant]
  5. RECLAST [Suspect]
     Dosage: 5 MG/100ML PER YEAR
     Dates: start: 20101228

REACTIONS (1)
  - BREAST CANCER [None]
